FAERS Safety Report 7417252-6 (Version None)
Quarter: 2011Q2

REPORT INFORMATION
  Report Type: 
  Country: None (occurrence: None)
  Receive Date: 20110415
  Receipt Date: 20110403
  Transmission Date: 20111010
  Serious: Yes (Other)
  Sender: FDA-Public Use
  Company Number: US-BAYER-201033598NA

PATIENT
  Age: 39 Year
  Sex: Female
  Weight: 106.12 kg

DRUGS (8)
  1. KLOR-CON [Concomitant]
     Dosage: UNK
     Route: 048
     Dates: start: 20060419
  2. CELEBREX [Concomitant]
     Dosage: 200 MG, UNK
     Route: 048
     Dates: start: 20000101
  3. PREVACID [Concomitant]
     Dosage: 30 MG, OM
     Route: 048
     Dates: start: 20000101
  4. DARVOCET [Concomitant]
     Route: 048
  5. XANAX [Concomitant]
     Dosage: 0.5 MG, UNK
     Route: 048
     Dates: start: 20000101
  6. YASMIN [Suspect]
     Indication: CONTRACEPTION
     Dosage: UNK UNK, UNK
     Route: 048
     Dates: start: 20030501, end: 20060601
  7. CIPROFLOXACIN [Concomitant]
     Dosage: 500 MG, UNK
     Route: 048
     Dates: start: 20060419
  8. FLEXERIL [Concomitant]
     Dosage: 10 MG, TID
     Route: 048

REACTIONS (3)
  - ARTERIAL THROMBOSIS [None]
  - PULMONARY EMBOLISM [None]
  - DEEP VEIN THROMBOSIS [None]
